FAERS Safety Report 20305297 (Version 1)
Quarter: 2022Q1

REPORT INFORMATION
  Report Type: Spontaneous
  Country: US (occurrence: None)
  Receive Date: 20220106
  Receipt Date: 20220106
  Transmission Date: 20220423
  Serious: No
  Sender: FDA-Public Use
  Company Number: None

PATIENT
  Age: 6 Month
  Sex: Male

DRUGS (1)
  1. ACETAMINOPHEN [Suspect]
     Active Substance: ACETAMINOPHEN
     Dosage: OTHER QUANTITY : 5 TEASPOON(S);?FREQUENCY : AS NEEDED;?

REACTIONS (1)
  - Product label confusion [None]

NARRATIVE: CASE EVENT DATE: 20220105
